FAERS Safety Report 6806562-9 (Version None)
Quarter: 2010Q2

REPORT INFORMATION
  Report Type: 
  Country: None (occurrence: None)
  Receive Date: 20100629
  Receipt Date: 20080305
  Transmission Date: 20101027
  Serious: Yes (Other)
  Sender: FDA-Public Use
  Company Number: US-PFIZER INC-2008020298

PATIENT
  Sex: Female

DRUGS (1)
  1. ALPRAZOLAM [Suspect]

REACTIONS (4)
  - ASTHENIA [None]
  - DIZZINESS [None]
  - HYPOTENSION [None]
  - LETHARGY [None]
